FAERS Safety Report 12194283 (Version 1)
Quarter: 2016Q1

REPORT INFORMATION
  Report Type: Spontaneous
  Country: US (occurrence: US)
  Receive Date: 20160321
  Receipt Date: 20160321
  Transmission Date: 20160526
  Serious: No
  Sender: FDA-Public Use
  Company Number: US-ZYDUS-009774

PATIENT
  Age: 79 Year
  Sex: Male

DRUGS (3)
  1. ATENOLOL/ATENOLOL HYDROCHLORIDE [Suspect]
     Active Substance: ATENOLOL HYDROCHLORIDE
     Indication: HEART RATE
     Dosage: 12.5 MG ONCE DAILY
     Route: 048
     Dates: start: 2013
  2. VALSARTAN. [Concomitant]
     Active Substance: VALSARTAN
  3. ATORVASTATIN [Concomitant]
     Active Substance: ATORVASTATIN
     Indication: HYPERLIPIDAEMIA

REACTIONS (4)
  - Dyspnoea [Not Recovered/Not Resolved]
  - Product substitution issue [None]
  - Drug ineffective for unapproved indication [Not Recovered/Not Resolved]
  - Heart rate increased [Not Recovered/Not Resolved]

NARRATIVE: CASE EVENT DATE: 20151211
